FAERS Safety Report 11023071 (Version 12)
Quarter: 2015Q4

REPORT INFORMATION
  Report Type: Report from Study
  Country: BE (occurrence: BE)
  Receive Date: 20150413
  Receipt Date: 20151028
  Transmission Date: 20160304
  Serious: Yes (Death, Hospitalization, Other)
  Sender: FDA-Public Use
  Company Number: BE-ABBVIE-15P-013-1331429-00

PATIENT
  Age: 83 Year
  Sex: Female

DRUGS (17)
  1. DUODOPA [Suspect]
     Active Substance: CARBIDOPA\LEVODOPA
     Dosage: AM 4 ML, CD 2 ML/H DURING 16H, ED 2 ML
     Route: 050
     Dates: start: 20150413, end: 20150727
  2. OMEPRAZOL [Concomitant]
     Active Substance: OMEPRAZOLE
  3. DUODOPA [Suspect]
     Active Substance: CARBIDOPA\LEVODOPA
     Dosage: AM 4ML, CD 2.1ML/H FOR 16HRS AND ED 2ML
     Route: 050
     Dates: start: 20150410, end: 20150413
  4. AMANTAN [Concomitant]
     Indication: PARKINSON^S DISEASE
     Route: 048
  5. STILNOCT [Concomitant]
     Active Substance: ZOLPIDEM TARTRATE
  6. DUODOPA [Suspect]
     Active Substance: CARBIDOPA\LEVODOPA
     Dosage: DOSAGE CONTINUOUSLY MONITORED AND ADJUSTED
     Route: 050
     Dates: start: 20101105, end: 20140901
  7. DUODOPA [Suspect]
     Active Substance: CARBIDOPA\LEVODOPA
     Dosage: AM 4 ML, CD 2.1 ML/H DURING 16H, ED 2.5 ML
     Route: 050
     Dates: start: 20150407, end: 20150410
  8. SERLAIN [Concomitant]
     Active Substance: SERTRALINE HYDROCHLORIDE
  9. DUODOPA [Suspect]
     Active Substance: CARBIDOPA\LEVODOPA
     Dosage: MD=4ML, CD=2.2ML/H FOR 16HRS AND ED=3.4ML
     Route: 050
     Dates: start: 20140901, end: 20150105
  10. DUODOPA [Suspect]
     Active Substance: CARBIDOPA\LEVODOPA
     Dosage: AM = 4 ML, CD = 1.8 ML/H DURING 16H, ED = 2 ML
     Route: 050
     Dates: start: 20150727
  11. DUODOPA [Suspect]
     Active Substance: CARBIDOPA\LEVODOPA
     Route: 050
     Dates: start: 20150730
  12. SERLAIN [Concomitant]
     Active Substance: SERTRALINE HYDROCHLORIDE
     Indication: PRODUCT USED FOR UNKNOWN INDICATION
  13. OMEPRAZOL [Concomitant]
     Active Substance: OMEPRAZOLE
     Indication: PRODUCT USED FOR UNKNOWN INDICATION
  14. DUODOPA [Suspect]
     Active Substance: CARBIDOPA\LEVODOPA
     Indication: PARKINSON^S DISEASE
     Dosage: MD=3.5ML, CD=2ML/H FOR 16HRS AND ED=1ML
     Route: 050
     Dates: start: 20101102, end: 20101105
  15. DUODOPA [Suspect]
     Active Substance: CARBIDOPA\LEVODOPA
     Dosage: MD=3.7ML, CD=2.1ML/H FOR 16HRS AND ED=3.1ML
     Route: 050
     Dates: start: 20150105, end: 20150407
  16. STILNOCT [Concomitant]
     Active Substance: ZOLPIDEM TARTRATE
     Indication: PRODUCT USED FOR UNKNOWN INDICATION
  17. DIFLUCAN [Concomitant]
     Active Substance: FLUCONAZOLE
     Indication: PRODUCT USED FOR UNKNOWN INDICATION

REACTIONS (17)
  - Death [Fatal]
  - General physical health deterioration [Unknown]
  - Malaise [Unknown]
  - Pain [Recovering/Resolving]
  - Freezing phenomenon [Unknown]
  - Weight decreased [Recovering/Resolving]
  - Fall [Unknown]
  - Fall [Unknown]
  - Fall [Unknown]
  - Terminal state [Unknown]
  - Femur fracture [Unknown]
  - Dyskinesia [Recovering/Resolving]
  - Haemorrhage [Unknown]
  - Confusional state [Unknown]
  - Dehydration [Unknown]
  - Hallucination [Recovering/Resolving]
  - Head injury [Unknown]

NARRATIVE: CASE EVENT DATE: 201412
